FAERS Safety Report 7265017-0 (Version None)
Quarter: 2011Q1

REPORT INFORMATION
  Report Type: 
  Country: None (occurrence: None)
  Receive Date: 20110131
  Receipt Date: 20101116
  Transmission Date: 20110831
  Serious: Yes (Other)
  Sender: FDA-Public Use
  Company Number: US-BAYER-201038315NA

PATIENT
  Sex: Female
  Weight: 86 kg

DRUGS (5)
  1. MULTI-VITAMINS [Concomitant]
     Indication: MEDICAL DIET
     Dosage: UNK
     Route: 048
  2. OCELLA [Suspect]
     Indication: PRODUCT USED FOR UNKNOWN INDICATION
     Dosage: UNK UNK, QD
     Dates: start: 20030101, end: 20090101
  3. SYNTHROID [Concomitant]
     Indication: HYPOTHYROIDISM
     Dosage: DAILY DOSE 200 MCG/24HR
     Route: 048
     Dates: start: 20030629
  4. YAZ [Suspect]
     Indication: PRODUCT USED FOR UNKNOWN INDICATION
  5. YASMIN [Suspect]
     Indication: PRODUCT USED FOR UNKNOWN INDICATION
     Dosage: UNK UNK, QD
     Dates: start: 20030101, end: 20090101

REACTIONS (3)
  - ABDOMINAL PAIN UPPER [None]
  - CHOLELITHIASIS [None]
  - PAINFUL RESPIRATION [None]
